FAERS Safety Report 13301940 (Version 1)
Quarter: 2017Q1

REPORT INFORMATION
  Report Type: Report from Study
  Country: US (occurrence: US)
  Receive Date: 20170307
  Receipt Date: 20170307
  Transmission Date: 20170428
  Serious: Yes (Other)
  Sender: FDA-Public Use
  Company Number: US-PFIZER INC-2017092635

PATIENT
  Age: 25 Year
  Sex: Female

DRUGS (1)
  1. IBRANCE [Suspect]
     Active Substance: PALBOCICLIB
     Indication: BREAST CANCER
     Dosage: 125 MG, CYCLIC(DAILY FOR DAY 1 - DAY 21 FOLLOWED BY 7 DAYS OFF EVERY 28 DAYS.)
     Route: 048
     Dates: start: 20151030, end: 20160529

REACTIONS (4)
  - Hot flush [Unknown]
  - Alopecia [Unknown]
  - Bone marrow failure [Unknown]
  - Drug dose omission [Unknown]
